FAERS Safety Report 9989180 (Version 1)
Quarter: 2014Q1

REPORT INFORMATION
  Report Type: Spontaneous
  Country: GB (occurrence: GB)
  Receive Date: 20140310
  Receipt Date: 20140310
  Transmission Date: 20141002
  Serious: Yes (Other)
  Sender: FDA-Public Use
  Company Number: GB-ROXANE LABORATORIES, INC.-2014-RO-00344RO

PATIENT
  Age: 9 Year
  Sex: Male

DRUGS (1)
  1. AZATHIOPRINE [Suspect]
     Indication: ERYTHEMA MULTIFORME
     Dosage: 30 MG
     Route: 065

REACTIONS (1)
  - Neutropenia [Unknown]
